FAERS Safety Report 7671131-8 (Version None)
Quarter: 2011Q3

REPORT INFORMATION
  Report Type: 
  Country: None (occurrence: None)
  Receive Date: 20110809
  Receipt Date: 20110803
  Transmission Date: 20111222
  Serious: Yes (Death, Life-Threatening, Hospitalization)
  Sender: FDA-Public Use
  Company Number: DE-JNJFOC-20110801248

PATIENT
  Age: 85 Year
  Sex: Female

DRUGS (7)
  1. LISINOPRIL [Concomitant]
     Indication: CARDIAC DISORDER
     Route: 048
  2. BISOPROLOL FUMARATE [Concomitant]
     Indication: CARDIAC DISORDER
     Route: 048
  3. DIGIMERCK [Concomitant]
     Indication: CARDIAC DISORDER
     Route: 048
  4. BIFITERAL [Concomitant]
     Route: 048
  5. ASPIRIN [Concomitant]
     Indication: CARDIAC DISORDER
     Route: 048
  6. RISPERDAL [Suspect]
     Indication: DEMENTIA
     Route: 048
     Dates: start: 20040918
  7. EUNERPAN [Interacting]
     Indication: PRODUCT USED FOR UNKNOWN INDICATION
     Route: 048
     Dates: start: 20040918

REACTIONS (4)
  - DRUG INTERACTION [None]
  - SUDDEN DEATH [None]
  - HOSPITALISATION [None]
  - HYPOKALAEMIA [None]
